FAERS Safety Report 14700705 (Version 1)
Quarter: 2018Q1

REPORT INFORMATION
  Report Type: Report from Study
  Country: ES (occurrence: ES)
  Receive Date: 20180330
  Receipt Date: 20180330
  Transmission Date: 20180509
  Serious: Yes (Other)
  Sender: FDA-Public Use
  Company Number: ES-TEVA-2018-ES-875062

PATIENT
  Age: 38 Year
  Sex: Male

DRUGS (11)
  1. CICLOFOSFAMIDA (120A) [Suspect]
     Active Substance: CYCLOPHOSPHAMIDE
     Dosage: 1620 MG
     Route: 042
     Dates: end: 20170529
  2. RANITIDINA 150 [Concomitant]
     Dosage: 1-0-1
     Route: 042
     Dates: start: 20170529
  3. PREDNISONA [Concomitant]
     Active Substance: PREDNISONE
     Dosage: 120 MG
     Route: 042
     Dates: start: 20170529, end: 20170529
  4. ALOPURINOL 300 [Concomitant]
     Active Substance: ALLOPURINOL
     Dosage: 1 CP
     Route: 048
     Dates: start: 20170526
  5. RITUXIMAB (2814A) [Suspect]
     Active Substance: RITUXIMAB
     Dosage: 610 MG
     Route: 042
     Dates: start: 20170530, end: 20170530
  6. BEMIPARINA [Concomitant]
     Active Substance: BEMIPARIN SODIUM
     Dosage: 7500 UI
     Route: 058
     Dates: start: 20170529
  7. TENOFOVIR (2838A) [Concomitant]
     Active Substance: TENOFOVIR
     Dosage: 245 MG DIA
     Route: 048
     Dates: start: 20170526
  8. DOXORUBICINA (202A) [Suspect]
     Active Substance: DOXORUBICIN HYDROCHLORIDE
     Dosage: 106 MG
     Route: 042
     Dates: start: 20170529, end: 20170529
  9. DEXKDETOPROFENO [Concomitant]
     Dosage: 50MG/8H
     Route: 048
     Dates: start: 20170529
  10. PARACETAMOL [Concomitant]
     Active Substance: ACETAMINOPHEN
     Dosage: 1GR/8H
     Route: 042
     Dates: start: 20170526
  11. DEXAMETASONA (722A) [Concomitant]
     Active Substance: DEXAMETHASONE
     Dosage: 8MG / 8H
     Route: 042
     Dates: start: 20170529, end: 20170605

REACTIONS (1)
  - Hepatitis [Recovered/Resolved]

NARRATIVE: CASE EVENT DATE: 20170529
